FAERS Safety Report 8833745 (Version 1)
Quarter: 2012Q4

REPORT INFORMATION
  Report Type: 
  Country: CO (occurrence: CO)
  Receive Date: 20121010
  Receipt Date: 20121010
  Transmission Date: 20130627
  Serious: Yes (Other)
  Sender: FDA-Public Use
  Company Number: CO-PFIZER INC-2012249165

PATIENT
  Age: 42 Year
  Sex: Female

DRUGS (3)
  1. LYRICA [Suspect]
     Indication: INTERVERTEBRAL DISC PROTRUSION
     Dosage: 75 mg, every 24 hours or 48 hours
     Route: 048
     Dates: start: 2010
  2. AMITRIPTYLINE [Concomitant]
     Indication: DEPRESSION
     Dosage: UNK, 1x/day
     Route: 048
     Dates: start: 2010
  3. OMEPRAZOLE [Concomitant]
     Dosage: one tablet at moring and one tablet at night
     Route: 048
     Dates: start: 2010

REACTIONS (3)
  - Rotator cuff syndrome [Unknown]
  - Nausea [Recovered/Resolved]
  - Dizziness [Recovered/Resolved]
